FAERS Safety Report 7820502-5 (Version None)
Quarter: 2011Q4

REPORT INFORMATION
  Report Type: 
  Country: None (occurrence: None)
  Receive Date: 20111018
  Receipt Date: 20111007
  Transmission Date: 20120403
  Serious: Yes (Hospitalization)
  Sender: FDA-Public Use
  Company Number: GB-ELI_LILLY_AND_COMPANY-GB201002005437

PATIENT
  Sex: Female
  Weight: 58.8 kg

DRUGS (8)
  1. CISPLATIN [Suspect]
     Indication: NON-SMALL CELL LUNG CANCER
     Dosage: 111 MG, CYCLES 1-3
  2. FOLIC ACID [Concomitant]
     Indication: PROPHYLAXIS
     Dosage: 400 UG, DAILY (1/D)
     Route: 048
     Dates: start: 20090930
  3. PEMETREXED [Suspect]
     Indication: NON-SMALL CELL LUNG CANCER
     Dosage: 775 MG, EVERY 21 DAYS
     Route: 042
     Dates: start: 20091001
  4. ENOXAPARIN SODIUM [Concomitant]
     Indication: PULMONARY EMBOLISM
     Dosage: 80 MG, DAILY (1/D)
     Route: 058
     Dates: start: 20091101
  5. DEXAMETHASONE [Concomitant]
     Indication: PROPHYLAXIS
  6. CISPLATIN [Suspect]
     Dosage: 118 MG, UNK
  7. VITAMIN B-12 [Concomitant]
     Indication: PROPHYLAXIS
     Dates: start: 20090930
  8. ACETAMINOPHEN [Concomitant]
     Indication: PAIN
     Dosage: 1 G, AS NEEDED

REACTIONS (3)
  - DECREASED APPETITE [None]
  - FATIGUE [None]
  - PRESYNCOPE [None]
